FAERS Safety Report 7056520-7 (Version None)
Quarter: 2010Q4

REPORT INFORMATION
  Report Type: 
  Country: None (occurrence: None)
  Receive Date: 20101021
  Receipt Date: 20101007
  Transmission Date: 20110411
  Serious: Yes (Other)
  Sender: FDA-Public Use
  Company Number: US-ELI_LILLY_AND_COMPANY-US201010002363

PATIENT
  Age: 42 Year
  Sex: Male

DRUGS (3)
  1. EFFIENT [Suspect]
     Dosage: 60 MG, UNKNOWN
     Route: 065
  2. EFFIENT [Suspect]
     Dosage: 10 MG, UNKNOWN
     Route: 065
  3. PLAVIX [Concomitant]

REACTIONS (2)
  - CORONARY ARTERY RESTENOSIS [None]
  - TREATMENT NONCOMPLIANCE [None]
